FAERS Safety Report 5616646-9 (Version None)
Quarter: 2008Q1

REPORT INFORMATION
  Report Type: 
  Country: None (occurrence: None)
  Receive Date: 20080206
  Receipt Date: 20080206
  Transmission Date: 20080703
  Serious: Yes (Death, Life-Threatening, Hospitalization)
  Sender: FDA-Public Use
  Company Number: None

PATIENT
  Age: 15 Year
  Sex: Male
  Weight: 35 kg

DRUGS (15)
  1. CONIVAPTAN [Suspect]
     Indication: HYPONATRAEMIA
     Dosage: 20 MG ONCE  IV BOLUS;  20 MG ONCE  IV DRIP
     Route: 040
     Dates: start: 20071003, end: 20071004
  2. CONIVAPTAN [Suspect]
     Indication: OLIGURIA
     Dosage: 20 MG ONCE  IV BOLUS;  20 MG ONCE  IV DRIP
     Route: 040
     Dates: start: 20071003, end: 20071004
  3. CONIVAPTAN [Suspect]
     Indication: HYPONATRAEMIA
     Dosage: 20 MG ONCE  IV BOLUS;  20 MG ONCE  IV DRIP
     Route: 040
     Dates: start: 20071126, end: 20071126
  4. CONIVAPTAN [Suspect]
     Indication: OLIGURIA
     Dosage: 20 MG ONCE  IV BOLUS;  20 MG ONCE  IV DRIP
     Route: 040
     Dates: start: 20071126, end: 20071126
  5. TPN [Concomitant]
  6. LABETALOL HCL [Concomitant]
  7. N-ACETYLCYSTEINE [Concomitant]
  8. LIPIDS [Concomitant]
  9. CRYOPRECIPITATED AHF [Concomitant]
  10. HYDROMORPHONE HCL [Concomitant]
  11. DIAZEPAM [Concomitant]
  12. EPINEPHRINE [Concomitant]
  13. FUROSEMIDE [Concomitant]
  14. FACTOR 7A -NOVOSEVEN- [Concomitant]
  15. HEPARIN [Concomitant]

REACTIONS (4)
  - CARDIAC ARREST [None]
  - MYOCARDIAL HAEMORRHAGE [None]
  - OFF LABEL USE [None]
  - RESPIRATORY ARREST [None]
